FAERS Safety Report 7135521-4 (Version None)
Quarter: 2010Q4

REPORT INFORMATION
  Report Type: 
  Country: None (occurrence: None)
  Receive Date: 20101203
  Receipt Date: 20101119
  Transmission Date: 20110411
  Serious: Yes (Other)
  Sender: FDA-Public Use
  Company Number: US-ELI_LILLY_AND_COMPANY-US201011005731

PATIENT
  Sex: Female

DRUGS (1)
  1. CYMBALTA [Suspect]
     Indication: NEURALGIA
     Dosage: 60 MG, DAILY (1/D)
     Dates: start: 20100501, end: 20100801

REACTIONS (11)
  - AMENORRHOEA [None]
  - ANAEMIA [None]
  - ANXIETY [None]
  - FATIGUE [None]
  - FEELING ABNORMAL [None]
  - GINGIVAL BLEEDING [None]
  - HAEMORRHAGE [None]
  - HYPOAESTHESIA ORAL [None]
  - MENORRHAGIA [None]
  - OFF LABEL USE [None]
  - POLYMENORRHOEA [None]
